FAERS Safety Report 6742747-8 (Version None)
Quarter: 2010Q2

REPORT INFORMATION
  Report Type: 
  Country: None (occurrence: None)
  Receive Date: 20100526
  Receipt Date: 20100219
  Transmission Date: 20101027
  Serious: No
  Sender: FDA-Public Use
  Company Number: US-ABBOTT-10P-163-0628590-00

PATIENT
  Age: 82 Year
  Sex: Female
  Weight: 79.45 kg

DRUGS (10)
  1. ZEMPLAR [Suspect]
     Indication: RENAL DISORDER
     Route: 048
     Dates: start: 20090201
  2. ACETAMINOPHEN W/ PROPOXYPHENE HCL [Concomitant]
     Indication: ARTHRITIS
  3. DILTIAZEM HCL [Concomitant]
     Indication: HYPERTENSION
  4. METOPROLOL [Concomitant]
     Indication: HYPERTENSION
  5. LEVOTHYROXINE SODIUM [Concomitant]
     Indication: HYPOTHYROIDISM
  6. ALLOPURINOL [Concomitant]
     Indication: DRUG USE FOR UNKNOWN INDICATION
  7. VITAL D [Concomitant]
     Indication: VITAMIN SUPPLEMENTATION
  8. FISH OIL [Concomitant]
     Indication: DRUG USE FOR UNKNOWN INDICATION
  9. CLONAZEPAM [Concomitant]
     Indication: DRUG USE FOR UNKNOWN INDICATION
  10. NIACIN [Concomitant]
     Indication: DRUG USE FOR UNKNOWN INDICATION

REACTIONS (2)
  - HERPES ZOSTER [None]
  - MALAISE [None]
